FAERS Safety Report 22376389 (Version 2)
Quarter: 2023Q2

REPORT INFORMATION
  Report Type: Spontaneous
  Country: US (occurrence: US)
  Receive Date: 20230527
  Receipt Date: 20230527
  Transmission Date: 20230722
  Serious: No
  Sender: FDA-Public Use
  Company Number: US-Dermavant-000557

PATIENT

DRUGS (2)
  1. TAPINAROF [Suspect]
     Active Substance: TAPINAROF
     Dosage: AREA OF APPLICATION: FOLDS OF SKIN (UNDERARMS, GROIN, BUTTOCKS, BACK OF KNEES)
     Route: 061
     Dates: start: 2023, end: 20230321
  2. VANICREAM [Concomitant]
     Active Substance: TITANIUM DIOXIDE\ZINC OXIDE
     Dates: end: 20230321

REACTIONS (3)
  - Erythema [Unknown]
  - Pruritus [Unknown]
  - Therapeutic product effect decreased [Unknown]
